FAERS Safety Report 9544149 (Version 2)
Quarter: 2013Q3

REPORT INFORMATION
  Report Type: Spontaneous
  Country: IT (occurrence: IT)
  Receive Date: 20130923
  Receipt Date: 20130923
  Transmission Date: 20140515
  Serious: Yes (Hospitalization)
  Sender: FDA-Public Use
  Company Number: PHHY2013IT082128

PATIENT
  Age: 67 Year
  Sex: Female

DRUGS (9)
  1. METFORMIN [Suspect]
     Indication: DIABETES MELLITUS
     Dosage: 3 DF, QD
     Route: 048
     Dates: start: 20130527, end: 20130601
  2. NOVORAPID [Suspect]
     Indication: DIABETES MELLITUS
     Dosage: 24 U/L, QD
     Route: 058
  3. LANTUS [Concomitant]
     Indication: DIABETES MELLITUS
     Dosage: 100 U/ML
  4. SERETIDE DISKUS [Concomitant]
     Indication: CHRONIC OBSTRUCTIVE PULMONARY DISEASE
  5. SPIRIVA [Concomitant]
     Indication: CHRONIC OBSTRUCTIVE PULMONARY DISEASE
     Dosage: 18 UG
  6. LYRICA [Concomitant]
  7. XENAZINA [Concomitant]
     Indication: BALLISMUS
  8. RAMIPRIL [Concomitant]
  9. LETROZOLE [Concomitant]

REACTIONS (2)
  - Hypoglycaemia [Recovered/Resolved]
  - Medication error [Recovered/Resolved]
